FAERS Safety Report 4951853-X (Version None)
Quarter: 2006Q1

REPORT INFORMATION
  Report Type: 
  Country: None (occurrence: None)
  Receive Date: 20060323
  Receipt Date: 20050810
  Transmission Date: 20060701
  Serious: Yes (Hospitalization, Other)
  Sender: FDA-Public Use
  Company Number: US-MERCK-0508USA01994

PATIENT
  Age: 55 Year
  Sex: Male
  Weight: 114 kg

DRUGS (15)
  1. VIOXX [Suspect]
     Indication: NECK PAIN
     Route: 048
     Dates: start: 19991101, end: 20020820
  2. VIOXX [Suspect]
     Indication: BACK PAIN
     Route: 048
     Dates: start: 19991101, end: 20020820
  3. BEXTRA [Concomitant]
     Route: 065
  4. BECONASE [Concomitant]
     Route: 065
  5. LISINOPRIL [Concomitant]
     Route: 065
  6. ATENOLOL [Concomitant]
     Route: 065
  7. COZAAR [Concomitant]
     Route: 065
  8. PLAVIX [Concomitant]
     Route: 065
  9. ZOCOR [Concomitant]
     Route: 065
  10. NIFEDIPINE [Concomitant]
     Route: 065
  11. ASPIRIN [Concomitant]
     Route: 065
  12. TOLINASE [Concomitant]
     Route: 065
  13. NEURONTIN [Concomitant]
     Route: 065
  14. PROTONIX [Concomitant]
     Route: 065
  15. GLUCOSAMINE [Concomitant]
     Route: 065

REACTIONS (5)
  - ANGINA PECTORIS [None]
  - CORONARY ARTERY DISEASE [None]
  - CORONARY ARTERY OCCLUSION [None]
  - CORONARY ARTERY RESTENOSIS [None]
  - CORONARY ARTERY THROMBOSIS [None]
